FAERS Safety Report 12131354 (Version 1)
Quarter: 2016Q1

REPORT INFORMATION
  Report Type: Spontaneous
  Country: BR (occurrence: BR)
  Receive Date: 20160301
  Receipt Date: 20160301
  Transmission Date: 20160526
  Serious: Yes (Hospitalization)
  Sender: FDA-Public Use
  Company Number: BR-PFIZER INC-2016114185

PATIENT
  Age: 49 Year
  Sex: Female
  Weight: 60 kg

DRUGS (6)
  1. ENDOFOLIN [Concomitant]
     Active Substance: FOLIC ACID
     Indication: ANAEMIA PROPHYLAXIS
     Dosage: 1 TABLET OF 5 MG 3X IN A WEEK
  2. ARTROLIVE [Concomitant]
     Active Substance: CHONDROITIN SULFATE (BOVINE)\GLUCOSAMINE SULFATE
     Indication: CHONDROPATHY
     Dosage: 1 TABLET, DAILY
  3. VALIUM [Concomitant]
     Active Substance: DIAZEPAM
     Indication: NEURALGIA
     Dosage: 1 TABLET OF 5 MG, UNK
  4. CALCIFEROL [Concomitant]
     Active Substance: ERGOCALCIFEROL
     Dosage: 1 TABLET PER DAY
  5. CITALOR [Suspect]
     Active Substance: ATORVASTATIN
     Indication: BLOOD CHOLESTEROL
     Dosage: 1 TABLET OF 10 MG, DAILY
     Dates: start: 2010
  6. NEURONTIN [Concomitant]
     Active Substance: GABAPENTIN
     Indication: NEURALGIA
     Dosage: 3 TABLETS OF 300 MG DAILY

REACTIONS (1)
  - Colitis [Unknown]

NARRATIVE: CASE EVENT DATE: 2013
